FAERS Safety Report 4984510-4 (Version None)
Quarter: 2006Q2

REPORT INFORMATION
  Report Type: 
  Country: None (occurrence: None)
  Receive Date: 20060420
  Receipt Date: 20060329
  Transmission Date: 20061013
  Serious: Yes (Disabling, Other)
  Sender: FDA-Public Use
  Company Number: 6021604

PATIENT
  Age: 50 Year
  Sex: Male

DRUGS (4)
  1. BISOPROLOL FUMARATE [Suspect]
     Dosage: 10,000 MG (10  MG, 1 IN 1 D) ORAL
     Route: 048
     Dates: start: 20030411, end: 20060217
  2. BENDROFLUAZIDE (BENDROFLUMETHIAZIDE) [Concomitant]
  3. PREDNISOLONE [Concomitant]
  4. AZATHIOPRINE [Concomitant]

REACTIONS (1)
  - INTERSTITIAL LUNG DISEASE [None]
